FAERS Safety Report 24034556 (Version 1)
Quarter: 2024Q2

REPORT INFORMATION
  Report Type: Spontaneous
  Country: US (occurrence: None)
  Receive Date: 20240628
  Receipt Date: 20240628
  Transmission Date: 20240716
  Serious: Yes (Other)
  Sender: FDA-Public Use
  Company Number: None

PATIENT
  Age: 37 Year
  Sex: Male

DRUGS (8)
  1. MEKINIST [Suspect]
     Active Substance: TRAMETINIB DIMETHYL SULFOXIDE
     Indication: Metastases to central nervous system
     Dosage: 2 MG DAILY ORAL ?
     Route: 048
     Dates: start: 20231226, end: 20240301
  2. TAFINLAR [Suspect]
     Active Substance: DABRAFENIB MESYLATE
     Indication: Metastases to central nervous system
     Dosage: 150 MG TWICE A DAY ORAL
     Route: 048
     Dates: start: 20231226, end: 20240301
  3. TADALAFIL [Concomitant]
  4. SERTRALINE [Concomitant]
  5. LEVETIRACETAM [Concomitant]
  6. TRIANCINOLONE ACETONIDE [Concomitant]
  7. HYDROCORDISONE [Concomitant]
  8. OXYCOCDONE [Concomitant]

REACTIONS (3)
  - Fatigue [None]
  - Insomnia [None]
  - Dehydration [None]

NARRATIVE: CASE EVENT DATE: 20240628
